FAERS Safety Report 8332986-7 (Version None)
Quarter: 2012Q2

REPORT INFORMATION
  Report Type: 
  Country: None (occurrence: None)
  Receive Date: 20120503
  Receipt Date: 20120425
  Transmission Date: 20120825
  Serious: Yes (Other)
  Sender: FDA-Public Use
  Company Number: PHHY2012CA036337

PATIENT
  Sex: Female

DRUGS (2)
  1. FEMARA [Suspect]
     Route: 048
  2. TAMOXIFEN CITRATE [Concomitant]

REACTIONS (2)
  - BREAST CANCER [None]
  - CONCOMITANT DISEASE PROGRESSION [None]
